FAERS Safety Report 13250308 (Version 1)
Quarter: 2017Q1

REPORT INFORMATION
  Report Type: Spontaneous
  Country: TW (occurrence: TW)
  Receive Date: 20170218
  Receipt Date: 20170218
  Transmission Date: 20170428
  Serious: Yes (Death, Other)
  Sender: FDA-Public Use
  Company Number: TW-AMGEN-TWNSP2017024576

PATIENT
  Age: 50 Year
  Sex: Male

DRUGS (6)
  1. CELECOXIB. [Concomitant]
     Active Substance: CELECOXIB
     Dosage: 1 DF, BID
  2. CHLORZOXAZONE. [Concomitant]
     Active Substance: CHLORZOXAZONE
     Dosage: 1 DF, BID
  3. SENNOSIDE A+B [Concomitant]
     Active Substance: SENNOSIDES A AND B
     Dosage: 1 DF, HS (BEFORE SLEEP)
  4. AMLODIPINE [Concomitant]
     Active Substance: AMLODIPINE BESYLATE
     Dosage: 1 DF, QD
  5. ENBREL [Suspect]
     Active Substance: ETANERCEPT
     Indication: ANKYLOSING SPONDYLITIS
     Dosage: 25 MG, TWICE PER WEEK
     Route: 058
     Dates: start: 20151230, end: 20170110
  6. SULFASALAZINE. [Concomitant]
     Active Substance: SULFASALAZINE
     Dosage: 1 DF, QD

REACTIONS (2)
  - Respiratory failure [Fatal]
  - Discomfort [Unknown]

NARRATIVE: CASE EVENT DATE: 20170125
